FAERS Safety Report 8915173 (Version 1)
Quarter: 2012Q4

REPORT INFORMATION
  Report Type: 
  Country: ES (occurrence: ES)
  Receive Date: 20121119
  Receipt Date: 20121119
  Transmission Date: 20130627
  Serious: Yes (Other)
  Sender: FDA-Public Use
  Company Number: ES-UCBSA-070723

PATIENT
  Age: 78 Year
  Sex: Male

DRUGS (1)
  1. NEUPRO [Suspect]
     Indication: RESTLESS LEGS SYNDROME
     Route: 062
     Dates: start: 20120731, end: 20120802

REACTIONS (1)
  - Suicidal ideation [Recovered/Resolved]
